FAERS Safety Report 15256873 (Version 1)
Quarter: 2018Q3

REPORT INFORMATION
  Report Type: Report from Study
  Country: US (occurrence: US)
  Receive Date: 20180808
  Receipt Date: 20180808
  Transmission Date: 20181010
  Serious: Yes (Death)
  Sender: FDA-Public Use
  Company Number: US-ACTELION-A-NJ2018-173871

PATIENT
  Age: 66 Year
  Sex: Female
  Weight: 117.91 kg

DRUGS (3)
  1. VELETRI [Suspect]
     Active Substance: EPOPROSTENOL
     Dosage: 5 NG/KG, PER MIN
     Route: 042
  2. XARELTO [Concomitant]
     Active Substance: RIVAROXABAN
  3. VELETRI [Suspect]
     Active Substance: EPOPROSTENOL
     Indication: PULMONARY ARTERIAL HYPERTENSION
     Dosage: 8 NG/KG, PER MIN
     Route: 042

REACTIONS (8)
  - Death [Fatal]
  - Oropharyngeal pain [Unknown]
  - Diarrhoea [Unknown]
  - Dysgeusia [Unknown]
  - Weight decreased [Unknown]
  - Swelling [Not Recovered/Not Resolved]
  - Headache [Unknown]
  - Arthritis [Unknown]

NARRATIVE: CASE EVENT DATE: 20180730
